FAERS Safety Report 6998943-8 (Version None)
Quarter: 2010Q3

REPORT INFORMATION
  Report Type: 
  Country: None (occurrence: None)
  Receive Date: 20100920
  Receipt Date: 20100301
  Transmission Date: 20110219
  Serious: Yes (Other)
  Sender: FDA-Public Use
  Company Number: US-ASTRAZENECA-2009UW20768

PATIENT
  Age: 18777 Day
  Sex: Male
  Weight: 141.5 kg

DRUGS (14)
  1. SEROQUEL [Suspect]
     Indication: DEPRESSION
     Dosage: 25-100 MG
     Route: 048
     Dates: start: 20020315
  2. SEROQUEL [Suspect]
     Indication: SLEEP DISORDER
     Dosage: 25-100 MG
     Route: 048
     Dates: start: 20020315
  3. SEROQUEL [Suspect]
     Indication: DISTURBANCE IN ATTENTION
     Dosage: 25-100 MG
     Route: 048
     Dates: start: 20020315
  4. SEROQUEL [Suspect]
     Indication: AFFECTIVE DISORDER
     Dosage: 25-100 MG
     Route: 048
     Dates: start: 20020315
  5. SEROQUEL [Suspect]
     Route: 048
     Dates: start: 20050426
  6. SEROQUEL [Suspect]
     Route: 048
     Dates: start: 20050426
  7. SEROQUEL [Suspect]
     Route: 048
     Dates: start: 20050426
  8. SEROQUEL [Suspect]
     Route: 048
     Dates: start: 20050426
  9. METFORMIN [Concomitant]
     Dates: start: 20080101
  10. GLIPIZIDE [Concomitant]
     Dates: start: 20080101
  11. FLUOXETINE [Concomitant]
     Dates: start: 20050426
  12. ATENOLOL [Concomitant]
     Dates: start: 20050426
  13. FELODIPINE [Concomitant]
     Dates: start: 20050426
  14. REMERON [Concomitant]
     Dosage: IN THE EVENING, UNKNOWN DOSE.
     Dates: start: 20050426

REACTIONS (4)
  - DIABETES MELLITUS [None]
  - KETOACIDOSIS [None]
  - PANCREATITIS [None]
  - TYPE 2 DIABETES MELLITUS [None]
